FAERS Safety Report 6074688-6 (Version None)
Quarter: 2009Q1

REPORT INFORMATION
  Report Type: 
  Country: None (occurrence: None)
  Receive Date: 20090208
  Receipt Date: 20090208
  Transmission Date: 20090719
  Serious: No
  Sender: FDA-Public Use
  Company Number: None

PATIENT
  Sex: Female
  Weight: 58.9676 kg

DRUGS (4)
  1. ACTONEL [Suspect]
     Indication: OSTEOPOROSIS
     Dosage: 75 MGM 1X MONTH ORAL
     Route: 048
     Dates: start: 20081215
  2. ACTONEL [Suspect]
     Indication: OSTEOPOROSIS
     Dosage: 75 MGM 1X MONTH ORAL
     Route: 048
     Dates: start: 20081216
  3. ACTONEL [Suspect]
     Indication: OSTEOPOROSIS
     Dosage: 75 MGM 1X MONTH ORAL
     Route: 048
     Dates: start: 20090115
  4. ACTONEL [Suspect]
     Indication: OSTEOPOROSIS
     Dosage: 75 MGM 1X MONTH ORAL
     Route: 048
     Dates: start: 20090116

REACTIONS (4)
  - EYE PAIN [None]
  - MIDDLE INSOMNIA [None]
  - NO THERAPEUTIC RESPONSE [None]
  - SINUS DISORDER [None]
